FAERS Safety Report 5568999-8 (Version None)
Quarter: 2007Q4

REPORT INFORMATION
  Report Type: 
  Country: None (occurrence: None)
  Receive Date: 20071220
  Receipt Date: 20070502
  Transmission Date: 20080405
  Serious: No
  Sender: FDA-Public Use
  Company Number: A0649720A

PATIENT
  Age: 72 Year
  Sex: Male

DRUGS (11)
  1. AVODART [Suspect]
     Indication: BENIGN PROSTATIC HYPERPLASIA
     Dosage: .5MG PER DAY
     Route: 048
     Dates: start: 20051101, end: 20061101
  2. METFORMIN HCL [Concomitant]
  3. TERAZOSIN HCL [Concomitant]
  4. HYDROCHLOROTHIAZIDE [Concomitant]
  5. ACTOS [Concomitant]
  6. ALTACE [Concomitant]
  7. GLIPIZIDE [Concomitant]
  8. ATENOLOL [Concomitant]
  9. PROTONIX [Concomitant]
  10. ASPIRIN [Concomitant]
  11. MULTI-VITAMIN [Concomitant]

REACTIONS (3)
  - BREAST PAIN [None]
  - BREAST SWELLING [None]
  - BREAST TENDERNESS [None]
